FAERS Safety Report 6367673-8 (Version None)
Quarter: 2009Q3

REPORT INFORMATION
  Report Type: 
  Country: None (occurrence: None)
  Receive Date: 20090921
  Receipt Date: 20090910
  Transmission Date: 20100115
  Serious: Yes (Hospitalization)
  Sender: FDA-Public Use
  Company Number: US-AVENTIS-200918131US

PATIENT
  Sex: Male

DRUGS (2)
  1. LANTUS [Suspect]
     Dosage: DOSE: SLIDING SCALE UP TO 225
     Route: 058
     Dates: start: 20090401
  2. OPTICLIK (INSULIN INJECTION PEN) [Suspect]
     Dates: start: 20090401

REACTIONS (3)
  - BLOOD GLUCOSE INCREASED [None]
  - PANCREATITIS [None]
  - VISION BLURRED [None]
